FAERS Safety Report 20875793 (Version 2)
Quarter: 2022Q2

REPORT INFORMATION
  Report Type: Report from Study
  Country: HK (occurrence: HK)
  Receive Date: 20220526
  Receipt Date: 20220620
  Transmission Date: 20220720
  Serious: Yes (Death, Other)
  Sender: FDA-Public Use
  Company Number: HK-ASTELLAS-2022US018324

PATIENT
  Age: 78 Year
  Sex: Female

DRUGS (2)
  1. BENDAMUSTINE HYDROCHLORIDE [Suspect]
     Active Substance: BENDAMUSTINE HYDROCHLORIDE
     Indication: Angioimmunoblastic T-cell lymphoma
     Dosage: (6 CYCLES)
     Route: 042
  2. FLUCONAZOLE [Suspect]
     Active Substance: FLUCONAZOLE
     Indication: Cryptococcosis
     Route: 065

REACTIONS (6)
  - Pneumonia cryptococcal [Fatal]
  - Cryptococcosis [Fatal]
  - Systemic mycosis [Fatal]
  - Sepsis [Fatal]
  - Bacterial infection [Fatal]
  - Drug ineffective [Fatal]
